FAERS Safety Report 4436325-3 (Version None)
Quarter: 2004Q3

REPORT INFORMATION
  Report Type: 
  Country: None (occurrence: None)
  Receive Date: 20040830
  Receipt Date: 20040730
  Transmission Date: 20050211
  Serious: No
  Sender: FDA-Public Use
  Company Number: US-BRISTOL-MYERS SQUIBB COMPANY-12657292

PATIENT
  Age: 54 Year
  Sex: Male
  Weight: 46 kg

DRUGS (7)
  1. ERBITUX [Suspect]
     Indication: COLORECTAL CANCER
     Route: 042
     Dates: start: 20040701, end: 20040701
  2. BENADRYL [Concomitant]
     Indication: PREMEDICATION
     Route: 042
     Dates: start: 20040709, end: 20040709
  3. AMBIEN [Concomitant]
  4. COUMADIN [Concomitant]
     Dosage: 5 MG THREE TIMES A WEEK; 2.5 MG FOUR TIMES A WEEK.
  5. FLONASE [Concomitant]
     Route: 045
  6. IMODIUM [Concomitant]
  7. PRILOSEC [Concomitant]

REACTIONS (3)
  - DERMATITIS ACNEIFORM [None]
  - DRY SKIN [None]
  - PRURITUS [None]
